FAERS Safety Report 11204097 (Version 2)
Quarter: 2015Q3

REPORT INFORMATION
  Report Type: Report from Study
  Country: NL (occurrence: NL)
  Receive Date: 20150619
  Receipt Date: 20150706
  Transmission Date: 20151125
  Serious: Yes (Death)
  Sender: FDA-Public Use
  Company Number: PHHY2015NL072434

PATIENT
  Sex: Male
  Weight: 65 kg

DRUGS (1)
  1. ZOMETA [Suspect]
     Active Substance: ZOLEDRONIC ACID
     Indication: HORMONE THERAPY
     Dosage: 4 MG/100 ML, ONCE EVERY 4 WEEKS
     Route: 042

REACTIONS (3)
  - Off label use [Unknown]
  - Prostate cancer [Fatal]
  - Acute kidney injury [Fatal]
